FAERS Safety Report 12528441 (Version 1)
Quarter: 2016Q3

REPORT INFORMATION
  Report Type: Spontaneous
  Country: ES (occurrence: ES)
  Receive Date: 20160705
  Receipt Date: 20160705
  Transmission Date: 20161109
  Serious: Yes (Hospitalization)
  Sender: FDA-Public Use
  Company Number: ES-JNJFOC-20130114356

PATIENT
  Age: 45 Year
  Sex: Male

DRUGS (4)
  1. YONDELIS [Suspect]
     Active Substance: TRABECTEDIN
     Indication: MYXOID LIPOSARCOMA
     Dosage: CYCLE TWO
     Route: 042
     Dates: start: 2011, end: 2011
  2. YONDELIS [Suspect]
     Active Substance: TRABECTEDIN
     Indication: MYXOID LIPOSARCOMA
     Route: 042
     Dates: start: 20110816
  3. DEXAMETHASONE. [Concomitant]
     Active Substance: DEXAMETHASONE
     Indication: PREMEDICATION
     Route: 065
     Dates: start: 20110524
  4. YONDELIS [Suspect]
     Active Substance: TRABECTEDIN
     Indication: MYXOID LIPOSARCOMA
     Dosage: CYCLE ONE
     Route: 042
     Dates: start: 20110524, end: 20110525

REACTIONS (3)
  - Device related thrombosis [Unknown]
  - Streptococcal bacteraemia [Unknown]
  - Nausea [Unknown]

NARRATIVE: CASE EVENT DATE: 2011
